FAERS Safety Report 8226319-4 (Version None)
Quarter: 2012Q1

REPORT INFORMATION
  Report Type: 
  Country: None (occurrence: None)
  Receive Date: 20120321
  Receipt Date: 20120312
  Transmission Date: 20120608
  Serious: Yes (Hospitalization, Other)
  Sender: FDA-Public Use
  Company Number: US-ASTRAZENECA-2011SE27098

PATIENT
  Age: 61 Year
  Sex: Female

DRUGS (2)
  1. METOPROLOL SUCCINATE [Suspect]
     Route: 065
  2. TOPROL-XL [Suspect]
     Route: 048

REACTIONS (5)
  - MENTAL IMPAIRMENT [None]
  - CEREBROVASCULAR ACCIDENT [None]
  - AMNESIA [None]
  - TRANSIENT ISCHAEMIC ATTACK [None]
  - PNEUMONIA [None]
